FAERS Safety Report 7057489-1 (Version None)
Quarter: 2010Q4

REPORT INFORMATION
  Report Type: 
  Country: None (occurrence: None)
  Receive Date: 20101022
  Receipt Date: 20101013
  Transmission Date: 20110411
  Serious: Yes (Hospitalization)
  Sender: FDA-Public Use
  Company Number: JP-PFIZER INC-2010130125

PATIENT
  Age: 81 Year
  Sex: Female

DRUGS (3)
  1. SULFASALAZINE [Suspect]
     Indication: RHEUMATOID ARTHRITIS
     Dosage: 1 G, DAY
     Route: 048
  2. MESALAZINE [Suspect]
     Dosage: 1.5 G, DAY
     Route: 048
  3. PREDNISOLONE [Concomitant]
     Indication: INFLAMMATORY BOWEL DISEASE
     Dosage: UNK
     Route: 048

REACTIONS (1)
  - ENTEROCOLITIS [None]
